FAERS Safety Report 9206994 (Version 1)
Quarter: 2013Q1

REPORT INFORMATION
  Report Type: Spontaneous
  Country: US (occurrence: None)
  Receive Date: 20120710
  Receipt Date: 20120710
  Transmission Date: 20140127
  Serious: Yes (Other)
  Sender: FDA-Public Use
  Company Number: 2012-00871

PATIENT
  Age: 33 Year
  Sex: Female
  Weight: 31.3 kg

DRUGS (1)
  1. LEVETIRACETAM TABLETS 1000MG (LEVETIRACETAM) [Suspect]
     Indication: CONVULSION
     Route: 048

REACTIONS (2)
  - Drug ineffective [None]
  - Tablet physical issue [None]
